FAERS Safety Report 15879049 (Version 9)
Quarter: 2020Q4

REPORT INFORMATION
  Report Type: Spontaneous
  Country: ES (occurrence: ES)
  Receive Date: 20190128
  Receipt Date: 20201119
  Transmission Date: 20210113
  Serious: Yes (Hospitalization, Other)
  Sender: FDA-Public Use
  Company Number: ES-SA-2019SA019581

PATIENT

DRUGS (4)
  1. SEPTRIN [Concomitant]
     Active Substance: SULFAMETHOXAZOLE\TRIMETHOPRIM
     Indication: INFECTION PROPHYLAXIS
     Dosage: 1 DF, TIW (MON, WED, FRI)
     Route: 048
     Dates: start: 20181029
  2. LEMTRADA [Suspect]
     Active Substance: ALEMTUZUMAB
     Indication: RELAPSING-REMITTING MULTIPLE SCLEROSIS
     Dosage: 12 MG, QD
     Route: 041
     Dates: start: 20171002, end: 20171006
  3. LEMTRADA [Suspect]
     Active Substance: ALEMTUZUMAB
     Dosage: 12 MG, QD
     Route: 041
     Dates: start: 20181029, end: 20181031
  4. ACYCLOVIR [ACICLOVIR] [Concomitant]
     Active Substance: ACYCLOVIR
     Indication: INFECTION PROPHYLAXIS
     Dosage: 200 MG, Q12H
     Route: 048
     Dates: start: 20181029

REACTIONS (19)
  - Anaemia [Recovered/Resolved]
  - Natural killer cell count decreased [Recovered/Resolved]
  - Haemoglobin decreased [Recovered/Resolved]
  - Hypertriglyceridaemia [Recovered/Resolved]
  - Hyperbilirubinaemia [Recovered/Resolved]
  - Pancytopenia [Recovered/Resolved]
  - Hepatomegaly [Recovered/Resolved]
  - Hyperferritinaemia [Recovered/Resolved]
  - Eosinophilia [Recovered/Resolved]
  - Cholestasis [Recovering/Resolving]
  - Jaundice [Recovered/Resolved]
  - Malaise [Recovered/Resolved]
  - Pyrexia [Recovered/Resolved]
  - Leukopenia [Recovered/Resolved]
  - Rash [Recovered/Resolved]
  - Vanishing bile duct syndrome [Unknown]
  - Haemophagocytic lymphohistiocytosis [Recovered/Resolved]
  - Rash papular [Recovered/Resolved]
  - Hepatitis acute [Recovered/Resolved]

NARRATIVE: CASE EVENT DATE: 201811
